FAERS Safety Report 14999397 (Version 3)
Quarter: 2018Q2

REPORT INFORMATION
  Report Type: Report from Study
  Country: US (occurrence: US)
  Receive Date: 20180612
  Receipt Date: 20180615
  Transmission Date: 20180711
  Serious: Yes (Death)
  Sender: FDA-Public Use
  Company Number: US-ROCHE-2138636

PATIENT
  Sex: Male

DRUGS (3)
  1. COTELLIC [Suspect]
     Active Substance: COBIMETINIB
     Indication: MALIGNANT MELANOMA
     Dosage: FOR 21 CONSEUTIVE DAYS ON FOLLOWED BY A 7 DAY REST PERIOD 1 MONTH SUPPLY REFILL 11 TIMES
     Route: 065
     Dates: start: 20180328
  2. ZELBORAF [Suspect]
     Active Substance: VEMURAFENIB
     Indication: MALIGNANT MELANOMA
     Dosage: ONGOING:NO
     Route: 065
  3. ZELBORAF [Suspect]
     Active Substance: VEMURAFENIB
     Dosage: 1 MONTH SUPPLY REFILL 11 TIMES
     Route: 065

REACTIONS (1)
  - Metastases to central nervous system [Fatal]
